FAERS Safety Report 10785943 (Version 1)
Quarter: 2015Q1

REPORT INFORMATION
  Report Type: Spontaneous
  Country: US (occurrence: None)
  Receive Date: 20150210
  Receipt Date: 20150210
  Transmission Date: 20150721
  Serious: No
  Sender: FDA-Public Use
  Company Number: None

PATIENT
  Age: 51 Year
  Sex: Female
  Weight: 58.97 kg

DRUGS (2)
  1. BOTOX [Suspect]
     Active Substance: ONABOTULINUMTOXINA
     Indication: SKIN WRINKLING
     Dates: start: 20150204
  2. BOTOX [Suspect]
     Active Substance: ONABOTULINUMTOXINA
     Indication: LIPOATROPHY
     Dates: start: 20150204

REACTIONS (7)
  - Lethargy [None]
  - Dizziness [None]
  - Malaise [None]
  - Contusion [None]
  - Fear [None]
  - Anxiety [None]
  - Nausea [None]

NARRATIVE: CASE EVENT DATE: 20150204
